FAERS Safety Report 8172866-3 (Version None)
Quarter: 2012Q1

REPORT INFORMATION
  Report Type: 
  Country: None (occurrence: None)
  Receive Date: 20120229
  Receipt Date: 20120229
  Transmission Date: 20120608
  Serious: Yes (Hospitalization)
  Sender: FDA-Public Use
  Company Number: None

PATIENT
  Sex: Female
  Weight: 72.6 kg

DRUGS (1)
  1. NORETHINDRONE ACETATE AND ETHINYL ESTRADIOL AND FERROUS FUMARATE [Suspect]
     Indication: CONTRACEPTION
     Dosage: 1 PILL
     Route: 048
     Dates: start: 20111201, end: 20120119

REACTIONS (1)
  - DEEP VEIN THROMBOSIS [None]
